FAERS Safety Report 8828594 (Version 1)
Quarter: 2012Q4

REPORT INFORMATION
  Report Type: 
  Country: FR (occurrence: FR)
  Receive Date: 20121005
  Receipt Date: 20121005
  Transmission Date: 20130627
  Serious: Yes (Death)
  Sender: FDA-Public Use
  Company Number: FR-ROCHE-1137942

PATIENT
  Age: 81 Year
  Sex: Male

DRUGS (14)
  1. AVASTIN [Suspect]
     Indication: PRODUCT USED FOR UNKNOWN INDICATION
     Route: 042
     Dates: start: 2009, end: 20120807
  2. FLUOROURACILE [Suspect]
     Indication: PRODUCT USED FOR UNKNOWN INDICATION
     Route: 042
     Dates: start: 2009, end: 20120807
  3. COAPROVEL [Concomitant]
  4. ISOPTINE [Concomitant]
  5. INNOHEP [Concomitant]
     Route: 065
     Dates: start: 2010
  6. IMODIUM [Concomitant]
  7. MOVICOL [Concomitant]
  8. GLIBENESE [Concomitant]
  9. ALLOPURINOL [Concomitant]
  10. STABLON [Concomitant]
  11. UVEDOSE [Concomitant]
  12. OXALIPLATIN [Concomitant]
     Route: 065
     Dates: start: 2009
  13. LEUCOVORIN [Concomitant]
     Route: 065
     Dates: start: 2009
  14. FOLINIC ACID [Concomitant]

REACTIONS (1)
  - Posterior reversible encephalopathy syndrome [Fatal]
